FAERS Safety Report 6805756-6 (Version None)
Quarter: 2010Q2

REPORT INFORMATION
  Report Type: 
  Country: None (occurrence: None)
  Receive Date: 20100628
  Receipt Date: 20100618
  Transmission Date: 20101027
  Serious: Yes (Other)
  Sender: FDA-Public Use
  Company Number: BR-BRISTOL-MYERS SQUIBB COMPANY-15165301

PATIENT
  Age: 53 Year
  Sex: Male
  Weight: 65 kg

DRUGS (5)
  1. APROVEL TABS 150 MG [Suspect]
     Indication: BLOOD PRESSURE MANAGEMENT
     Dosage: 1TAB PER DAY;150MG START DATE:2003 1 TAB/DAY.
     Route: 048
     Dates: start: 20030101
  2. APROVEL TABS 300 MG [Suspect]
     Indication: BLOOD PRESSURE MANAGEMENT
     Dosage: 1DF:0.5MG TAB PER DAY;300 MG 6 MONTH AGO 0.5TAB/DAY
     Route: 048
  3. ASPIRIN [Concomitant]
     Indication: PROPHYLAXIS
     Route: 048
     Dates: start: 20090101
  4. LIPITOR [Concomitant]
     Indication: PROPHYLAXIS
     Dosage: 20MG TAB 1 DF: 1TAB
     Route: 048
     Dates: start: 20090101
  5. OLCADIL [Concomitant]
     Dosage: 1 DF: 1 TAB EACH 3 DAYS
     Route: 048
     Dates: start: 20090101

REACTIONS (3)
  - FATIGUE [None]
  - INFARCTION [None]
  - TACHYCARDIA [None]
